FAERS Safety Report 5874118-0 (Version None)
Quarter: 2008Q3

REPORT INFORMATION
  Report Type: 
  Country: None (occurrence: None)
  Receive Date: 20080903
  Receipt Date: 20080819
  Transmission Date: 20090109
  Serious: Yes (Hospitalization)
  Sender: FDA-Public Use
  Company Number: CZ-JNJFOC-20080804276

PATIENT
  Age: 68 Year
  Sex: Male

DRUGS (6)
  1. DECITABINE (DECITABINE) LYOPHILIZED POWDER [Suspect]
     Indication: ACUTE MYELOID LEUKAEMIA
     Dosage: 38 MG, 1 IN 1 DAY, INTRAVENOUS
     Route: 042
     Dates: end: 20080714
  2. DECITABINE (DECITABINE) LYOPHILIZED POWDER [Suspect]
     Indication: ACUTE MYELOID LEUKAEMIA
     Dosage: 38 MG, 1 IN 1 DAY, INTRAVENOUS
     Route: 042
     Dates: start: 20071129
  3. BACTRIM [Concomitant]
  4. FLUCONAZOLE [Concomitant]
  5. AMOXICILLIN/CLAVULANIC ACID (AMOXICILLIN W; CLAVULANATE POTASSIUM) [Concomitant]
  6. AUGMENTIN '125' [Concomitant]

REACTIONS (3)
  - HAEMOGLOBIN DECREASED [None]
  - PLATELET COUNT DECREASED [None]
  - PNEUMONITIS [None]
